FAERS Safety Report 7473047-9 (Version None)
Quarter: 2011Q2

REPORT INFORMATION
  Report Type: 
  Country: None (occurrence: None)
  Receive Date: 20110511
  Receipt Date: 20110428
  Transmission Date: 20111010
  Serious: Yes (Other)
  Sender: FDA-Public Use
  Company Number: GR-ELI_LILLY_AND_COMPANY-GR201105000270

PATIENT
  Age: 64 Year
  Sex: Male
  Weight: 90 kg

DRUGS (5)
  1. SINTROM [Concomitant]
     Dosage: 6 MG, QD
     Route: 048
  2. SEROXAT [Concomitant]
     Dosage: 10 MG, QD
     Route: 048
     Dates: start: 20110201
  3. ZYPREXA [Suspect]
     Indication: SLEEP DISORDER
     Dosage: 10 MG, QD
     Route: 048
     Dates: start: 20110414
  4. SINTROM [Concomitant]
     Indication: ANTICOAGULANT THERAPY
     Dosage: 3 MG, QD
     Route: 048
     Dates: start: 20030101
  5. LOPRESSOR [Concomitant]
     Indication: CARDIAC DISORDER
     Dosage: 50 MG, QD
     Route: 048
     Dates: start: 20030101

REACTIONS (2)
  - OFF LABEL USE [None]
  - INTERNATIONAL NORMALISED RATIO DECREASED [None]
